FAERS Safety Report 10181296 (Version 2)
Quarter: 2014Q2

REPORT INFORMATION
  Report Type: Spontaneous
  Country: US (occurrence: US)
  Receive Date: 20140519
  Receipt Date: 20140519
  Transmission Date: 20141212
  Serious: No
  Sender: FDA-Public Use
  Company Number: US-AMGEN INC.-USASP2014027676

PATIENT
  Age: 90 Year
  Sex: Female
  Weight: 61.22 kg

DRUGS (1)
  1. PROLIA [Suspect]
     Indication: OSTEOPOROSIS POSTMENOPAUSAL
     Dosage: 60 MG, UNK
     Route: 058
     Dates: start: 20130813, end: 20140320

REACTIONS (3)
  - Muscle spasms [Not Recovered/Not Resolved]
  - Adverse reaction [Not Recovered/Not Resolved]
  - Pain in extremity [Not Recovered/Not Resolved]
